FAERS Safety Report 5517615-X (Version None)
Quarter: 2007Q4

REPORT INFORMATION
  Report Type: 
  Country: None (occurrence: None)
  Receive Date: 20071114
  Receipt Date: 20071102
  Transmission Date: 20080405
  Serious: Yes (Other)
  Sender: FDA-Public Use
  Company Number: US-PFIZER INC-2007093645

PATIENT
  Sex: Female
  Weight: 86.2 kg

DRUGS (3)
  1. CHANTIX [Suspect]
     Indication: SMOKING CESSATION THERAPY
  2. LIPITOR [Concomitant]
  3. PAXIL [Concomitant]

REACTIONS (3)
  - COGNITIVE DISORDER [None]
  - SLEEP DISORDER [None]
  - THINKING ABNORMAL [None]
